FAERS Safety Report 9564929 (Version 3)
Quarter: 2013Q4

REPORT INFORMATION
  Report Type: Spontaneous
  Country: JP (occurrence: JP)
  Receive Date: 20130930
  Receipt Date: 20131014
  Transmission Date: 20140711
  Serious: Yes (Death, Other)
  Sender: FDA-Public Use
  Company Number: JP-PFIZER INC-2013275913

PATIENT
  Age: 93 Year
  Sex: 0

DRUGS (2)
  1. LYRICA [Suspect]
     Indication: PROCEDURAL PAIN
     Dosage: 75 MG, 2X/DAY
     Route: 048
     Dates: start: 20130914, end: 20130917
  2. TRAMCET [Concomitant]
     Indication: PROCEDURAL PAIN
     Dosage: UNK
     Route: 048
     Dates: start: 20130914, end: 20130917

REACTIONS (1)
  - Interstitial lung disease [Fatal]
